FAERS Safety Report 12994903 (Version 1)
Quarter: 2016Q4

REPORT INFORMATION
  Report Type: Spontaneous
  Country: IT (occurrence: IT)
  Receive Date: 20161202
  Receipt Date: 20161202
  Transmission Date: 20170207
  Serious: Yes (Hospitalization)
  Sender: FDA-Public Use
  Company Number: IT-BAYER-2016-228017

PATIENT
  Age: 41 Year
  Sex: Female

DRUGS (1)
  1. KLAIRA [Suspect]
     Active Substance: DIENOGEST\ETHINYL ESTRADIOL
     Indication: METRORRHAGIA
     Dosage: DAILY DOSE 1 DF
     Route: 048
     Dates: start: 20100601, end: 20161125

REACTIONS (2)
  - Blood pressure fluctuation [Recovered/Resolved]
  - Paraesthesia [Recovered/Resolved]

NARRATIVE: CASE EVENT DATE: 20161117
